FAERS Safety Report 8020412-7 (Version None)
Quarter: 2012Q1

REPORT INFORMATION
  Report Type: 
  Country: None (occurrence: None)
  Receive Date: 20120103
  Receipt Date: 20111228
  Transmission Date: 20120608
  Serious: Yes (Other)
  Sender: FDA-Public Use
  Company Number: US-PFIZER INC-2011301095

PATIENT
  Sex: Male

DRUGS (1)
  1. IBUPROFEN [Suspect]

REACTIONS (4)
  - DYSPNOEA [None]
  - WHEEZING [None]
  - THROAT TIGHTNESS [None]
  - NASAL CONGESTION [None]
